FAERS Safety Report 24325044 (Version 2)
Quarter: 2024Q4

REPORT INFORMATION
  Report Type: Spontaneous
  Country: AU (occurrence: AU)
  Receive Date: 20240916
  Receipt Date: 20241009
  Transmission Date: 20250115
  Serious: Yes (Other)
  Sender: MERCK
  Company Number: AU-009507513-2409AUS005159

PATIENT
  Sex: Female

DRUGS (1)
  1. TEMOZOLOMIDE [Suspect]
     Active Substance: TEMOZOLOMIDE
     Indication: Glioblastoma
     Dosage: 430 MILLIGRAM, QD
     Route: 048
     Dates: start: 20210412, end: 20211108

REACTIONS (2)
  - Abortion spontaneous [Recovered/Resolved]
  - Maternal exposure via partner during pregnancy [Unknown]

NARRATIVE: CASE EVENT DATE: 20210905
